FAERS Safety Report 7013007-5 (Version None)
Quarter: 2010Q3

REPORT INFORMATION
  Report Type: 
  Country: None (occurrence: None)
  Receive Date: 20100924
  Receipt Date: 20100917
  Transmission Date: 20110219
  Serious: Yes (Hospitalization, Other)
  Sender: FDA-Public Use
  Company Number: GB-AMGEN-KDL436892

PATIENT
  Sex: Female
  Weight: 84 kg

DRUGS (3)
  1. NEULASTA [Suspect]
     Indication: CHEMOTHERAPY
     Route: 058
     Dates: start: 20100815, end: 20100815
  2. DOCETAXEL [Suspect]
     Route: 042
     Dates: start: 20100813, end: 20100813
  3. AVASTIN [Concomitant]
     Route: 042
     Dates: start: 20100813, end: 20100813

REACTIONS (3)
  - DRUG INEFFECTIVE [None]
  - NEUTROPENIC SEPSIS [None]
  - NEUTROPHIL COUNT DECREASED [None]
